FAERS Safety Report 23549977 (Version 1)
Quarter: 2024Q1

REPORT INFORMATION
  Report Type: Spontaneous
  Country: US (occurrence: None)
  Receive Date: 20240221
  Receipt Date: 20240221
  Transmission Date: 20240410
  Serious: Yes (Hospitalization)
  Sender: FDA-Public Use
  Company Number: None

PATIENT
  Age: 34 Year
  Sex: Female

DRUGS (2)
  1. CAPECITABINE [Suspect]
     Active Substance: CAPECITABINE
     Indication: Breast cancer female
     Dosage: TAKE 3 TABLETS BY MOUTH 2 TIMES A DAY ON DAYS 1 TO 14 OF A 21DAY CYCLE.
     Dates: start: 202312
  2. ENHERTU [Concomitant]

REACTIONS (2)
  - Arthropathy [None]
  - Swelling [None]

NARRATIVE: CASE EVENT DATE: 20240218
